FAERS Safety Report 9850224 (Version 1)
Quarter: 2014Q1

REPORT INFORMATION
  Report Type: Spontaneous
  Country: US (occurrence: None)
  Receive Date: 20140124
  Receipt Date: 20140124
  Transmission Date: 20141002
  Serious: Yes (Other)
  Sender: FDA-Public Use
  Company Number: None

PATIENT
  Age: 82 Year
  Sex: Female
  Weight: 64.86 kg

DRUGS (5)
  1. FLEBOGAMMA [Suspect]
     Indication: PLASMA CELL MYELOMA
     Route: 042
     Dates: start: 20140102, end: 20140102
  2. VELCADE [Concomitant]
  3. GABAPENTIN [Concomitant]
  4. ALBUTEROL INHALER [Concomitant]
  5. LASIX [Concomitant]

REACTIONS (2)
  - Back pain [None]
  - Chills [None]
